FAERS Safety Report 7816747-0 (Version None)
Quarter: 2011Q4

REPORT INFORMATION
  Report Type: 
  Country: None (occurrence: None)
  Receive Date: 20111013
  Receipt Date: 20110930
  Transmission Date: 20120403
  Serious: Yes (Congenital Anomaly)
  Sender: FDA-Public Use
  Company Number: AUR-APL-2010-00379

PATIENT
  Sex: Female
  Weight: 3.13 kg

DRUGS (3)
  1. ZIDOVUDINE [Suspect]
     Indication: PRODUCT USED FOR UNKNOWN INDICATION
     Dosage: TRANSPLACENTAL
     Route: 064
     Dates: start: 20100109, end: 20100109
  2. LAMIVUDINE + ZIDOVUDINE [Suspect]
     Indication: HIV INFECTION
     Dosage: (2 DOSAGE FORMS), TRANSPLACENTAL
     Route: 064
     Dates: start: 20070319
  3. RITONAVIR [Suspect]
     Indication: HIV INFECTION
     Dosage: (200 MG), TRANSPLACENTAL
     Route: 064
     Dates: start: 20070319, end: 20090924

REACTIONS (2)
  - CONGENITAL NAIL DISORDER [None]
  - MATERNAL DRUGS AFFECTING FOETUS [None]
